FAERS Safety Report 20333532 (Version 1)
Quarter: 2022Q1

REPORT INFORMATION
  Report Type: Spontaneous
  Country: US (occurrence: None)
  Receive Date: 20220113
  Receipt Date: 20220113
  Transmission Date: 20220423
  Serious: No
  Sender: FDA-Public Use
  Company Number: None

PATIENT
  Age: 67 Year
  Sex: Female
  Weight: 101.6 kg

DRUGS (1)
  1. ACTEMRA [Suspect]
     Active Substance: TOCILIZUMAB
     Indication: Pneumonia
     Dosage: INJECT 162 MG SUBCUTANEOUSLY EVERY  OTHER WEEK AS DIRECTED.
     Route: 058
     Dates: start: 201806

REACTIONS (1)
  - Infection [None]
